FAERS Safety Report 6252956-2 (Version None)
Quarter: 2009Q3

REPORT INFORMATION
  Report Type: 
  Country: None (occurrence: None)
  Receive Date: 20090701
  Receipt Date: 20090622
  Transmission Date: 20100115
  Serious: Yes (Hospitalization)
  Sender: FDA-Public Use
  Company Number: B0572156A

PATIENT
  Sex: Male

DRUGS (22)
  1. ZOVIRAX [Suspect]
     Route: 048
     Dates: start: 20090401
  2. PONSTAN [Concomitant]
     Route: 065
  3. PANADO [Concomitant]
     Route: 065
  4. NASONEX [Concomitant]
     Indication: DRUG USE FOR UNKNOWN INDICATION
     Route: 065
  5. EMPAPED SUPPOSITORIES [Concomitant]
     Indication: DRUG USE FOR UNKNOWN INDICATION
     Route: 065
  6. COMBIVENT [Concomitant]
     Indication: DRUG USE FOR UNKNOWN INDICATION
     Route: 065
  7. ANDOLEX C [Concomitant]
     Indication: DRUG USE FOR UNKNOWN INDICATION
     Route: 065
  8. DAKTARIN [Concomitant]
     Route: 065
  9. ZITHROMAX [Concomitant]
     Route: 065
  10. UNKNOWN DRUG [Concomitant]
     Route: 065
  11. DEMAZIN [Concomitant]
     Route: 065
  12. UNKNOWN DRUG [Concomitant]
     Indication: VITAMIN SUPPLEMENTATION
     Route: 065
  13. UNKNOWN DRUG [Concomitant]
     Indication: VITAMIN C
     Route: 065
  14. LYSINE [Concomitant]
     Indication: HERPES VIRUS INFECTION
     Route: 065
  15. UNKNOWN DRUG [Concomitant]
     Route: 065
  16. STERIMAR [Concomitant]
     Indication: DRUG USE FOR UNKNOWN INDICATION
     Route: 065
  17. SINGULAIR [Concomitant]
     Indication: MULTIPLE ALLERGIES
     Route: 065
  18. SERETIDE [Concomitant]
     Indication: ASTHMA
     Route: 055
  19. BETNESOL NASAL SPRAY [Concomitant]
     Indication: DRUG USE FOR UNKNOWN INDICATION
     Route: 065
  20. UNKNOWN DRUG [Concomitant]
     Indication: DRUG USE FOR UNKNOWN INDICATION
     Route: 065
  21. UNKNOWN DRUG [Concomitant]
     Route: 065
  22. UNKNOWN DRUG [Concomitant]
     Route: 065

REACTIONS (9)
  - BLISTER [None]
  - DYSPHAGIA [None]
  - EPIDERMAL NECROSIS [None]
  - NEUTROPHIL COUNT INCREASED [None]
  - OROPHARYNGEAL PAIN [None]
  - PNEUMONIA ASPIRATION [None]
  - RASH VESICULAR [None]
  - SKIN EXFOLIATION [None]
  - STEVENS-JOHNSON SYNDROME [None]
